FAERS Safety Report 4331498-5 (Version None)
Quarter: 2004Q2

REPORT INFORMATION
  Report Type: 
  Country: None (occurrence: None)
  Receive Date: 20040405
  Receipt Date: 20040330
  Transmission Date: 20050107
  Serious: Yes (Death, Hospitalization)
  Sender: FDA-Public Use
  Company Number: PHBS2004CZ04352

PATIENT
  Age: 72 Year
  Sex: Female

DRUGS (6)
  1. CARBAMAZEPINE [Suspect]
     Dosage: 400 MG/DAY
     Route: 048
  2. CARBAMAZEPINE [Suspect]
     Dosage: 800 MG/DAY
     Route: 048
  3. VALPROATE SODIUM [Concomitant]
     Dosage: 500 MG/DAY
     Route: 065
  4. VALPROATE SODIUM [Concomitant]
     Dosage: 1000 MG/DAY
     Route: 065
  5. LEVOTHYROXINE SODIUM [Concomitant]
     Dosage: 100 UG/DAY
     Route: 065
  6. LEVOTHYROXINE SODIUM [Concomitant]
     Dosage: 200 UG/DAY
     Route: 065

REACTIONS (11)
  - BLOOD THYROID STIMULATING HORMONE INCREASED [None]
  - CEREBRAL ISCHAEMIA [None]
  - CONSTIPATION [None]
  - DEPRESSED LEVEL OF CONSCIOUSNESS [None]
  - EYELID OEDEMA [None]
  - FACIAL PALSY [None]
  - HEMIPLEGIA [None]
  - HYPOTHYROIDISM [None]
  - LETHARGY [None]
  - SEPSIS [None]
  - URINARY TRACT INFECTION [None]
